FAERS Safety Report 5179063-4 (Version None)
Quarter: 2006Q4

REPORT INFORMATION
  Report Type: 
  Country: None (occurrence: None)
  Receive Date: 20061219
  Receipt Date: 20061208
  Transmission Date: 20070319
  Serious: Yes (Death)
  Sender: FDA-Public Use
  Company Number: JP-JNJFOC-20061203706

PATIENT
  Age: 8 Decade
  Sex: Female

DRUGS (3)
  1. LEVOFLOXACIN [Suspect]
     Indication: OTITIS EXTERNA
     Route: 048
  2. LEVOFLOXACIN [Suspect]
     Indication: ARTERIAL THROMBOSIS
     Route: 048
  3. LOXOPROFEN [Concomitant]
     Indication: PAIN
     Route: 065

REACTIONS (3)
  - DISCOMFORT [None]
  - DYSPNOEA [None]
  - SUDDEN DEATH [None]
